FAERS Safety Report 9816777 (Version 1)
Quarter: 2014Q1

REPORT INFORMATION
  Report Type: Spontaneous
  Country: US (occurrence: US)
  Receive Date: 20140114
  Receipt Date: 20140114
  Transmission Date: 20141002
  Serious: No
  Sender: FDA-Public Use
  Company Number: US-ENDO PHARMACEUTICALS INC.-PERC20130158

PATIENT
  Sex: Male

DRUGS (2)
  1. PERCOCET 5MG/325MG [Suspect]
     Indication: PAIN
     Dosage: 20/1300 MG
     Route: 048
  2. PERCOCET 5MG/325MG [Suspect]
     Dosage: UNKNOWN
     Route: 048

REACTIONS (1)
  - Drug screen positive [Not Recovered/Not Resolved]
